FAERS Safety Report 4464629-7 (Version None)
Quarter: 2004Q3

REPORT INFORMATION
  Report Type: 
  Country: None (occurrence: None)
  Receive Date: 20040928
  Receipt Date: 20040913
  Transmission Date: 20050211
  Serious: No
  Sender: FDA-Public Use
  Company Number: B0345212A

PATIENT
  Age: 40 Year
  Sex: Male

DRUGS (3)
  1. RETROVIR [Suspect]
     Dates: start: 20020901
  2. EPIVIR [Suspect]
     Dates: start: 20020901
  3. ZIAGEN [Suspect]
     Dates: start: 20020901

REACTIONS (12)
  - ARTHRALGIA [None]
  - HYPERTROPHY [None]
  - HYPOAESTHESIA [None]
  - NEUROPATHY PERIPHERAL [None]
  - PAIN [None]
  - PAIN IN EXTREMITY [None]
  - SENSORY LOSS [None]
  - SKIN LESION [None]
  - SKIN ULCER [None]
  - THERAPY NON-RESPONDER [None]
  - TUBERCULOID LEPROSY [None]
  - VASCULITIS [None]
